FAERS Safety Report 20412335 (Version 2)
Quarter: 2022Q1

REPORT INFORMATION
  Report Type: Spontaneous
  Country: DZ (occurrence: DZ)
  Receive Date: 20220201
  Receipt Date: 20220314
  Transmission Date: 20220423
  Serious: Yes (Other)
  Sender: FDA-Public Use
  Company Number: DZ-BAYER-2022A014977

PATIENT
  Age: 86 Year
  Sex: Female

DRUGS (3)
  1. NEXAVAR [Suspect]
     Active Substance: SORAFENIB
     Indication: Thyroid cancer
     Dosage: 600 MG, QD
     Dates: start: 202112
  2. NEXAVAR [Suspect]
     Active Substance: SORAFENIB
     Indication: Thyroid cancer
     Dosage: DAILY DOSE 400 MG FOR 10 DAYS
     Dates: start: 202201
  3. NEXAVAR [Suspect]
     Active Substance: SORAFENIB
     Indication: Thyroid cancer
     Dosage: DAILY DOSE 600 MG

REACTIONS (3)
  - Necrosis [None]
  - Tumour haemorrhage [Recovered/Resolved with Sequelae]
  - Off label use [None]

NARRATIVE: CASE EVENT DATE: 20211201
